FAERS Safety Report 8862989 (Version 1)
Quarter: 2012Q4

REPORT INFORMATION
  Report Type: 
  Country: US (occurrence: US)
  Receive Date: 20121026
  Receipt Date: 20121026
  Transmission Date: 20130627
  Serious: No
  Sender: FDA-Public Use
  Company Number: US-ALLERGAN-1204101US

PATIENT
  Age: 72 Year
  Sex: Female

DRUGS (3)
  1. ALPHAGAN [Suspect]
     Indication: GLAUCOMA
     Dosage: UNK
     Dates: start: 201111
  2. ALBUTEROL INHALER [Concomitant]
     Indication: ASTHMA
     Dosage: UNK
     Route: 048
  3. DIAZEPAM [Concomitant]
     Indication: ANXIETY
     Dosage: UNK
     Route: 048

REACTIONS (4)
  - Paraesthesia [Recovering/Resolving]
  - Paraesthesia [Recovering/Resolving]
  - Anxiety [Recovering/Resolving]
  - Palpitations [Recovering/Resolving]
